FAERS Safety Report 25077621 (Version 2)
Quarter: 2025Q2

REPORT INFORMATION
  Report Type: Report from Study
  Country: GB (occurrence: GB)
  Receive Date: 20250314
  Receipt Date: 20250507
  Transmission Date: 20250716
  Serious: Yes (Other)
  Sender: ALEXION PHARMACEUTICALS
  Company Number: GB-ASTRAZENECA-202503GLO005388GB

PATIENT
  Age: 69 Year
  Weight: 56.4 kg

DRUGS (5)
  1. DURVALUMAB [Suspect]
     Active Substance: DURVALUMAB
     Indication: Non-small cell lung cancer
  2. DURVALUMAB [Suspect]
     Active Substance: DURVALUMAB
  3. LERCANIDIPINE [Concomitant]
     Active Substance: LERCANIDIPINE
  4. PRAVASTATIN [Concomitant]
     Active Substance: PRAVASTATIN
  5. AMITRIPTYLINE [Concomitant]
     Active Substance: AMITRIPTYLINE

REACTIONS (2)
  - Mental disorder [Unknown]
  - Neurotoxicity [Unknown]
